FAERS Safety Report 7236620-9 (Version None)
Quarter: 2011Q1

REPORT INFORMATION
  Report Type: 
  Country: None (occurrence: None)
  Receive Date: 20110120
  Receipt Date: 20110117
  Transmission Date: 20110831
  Serious: Yes (Other)
  Sender: FDA-Public Use
  Company Number: US-ELI_LILLY_AND_COMPANY-US201101004274

PATIENT
  Sex: Male

DRUGS (1)
  1. HUMULIN 70/30 [Suspect]
     Indication: DIABETES MELLITUS
     Dosage: 50 U, DAILY (1/D)

REACTIONS (4)
  - LIMB INJURY [None]
  - HYPOGLYCAEMIA UNAWARENESS [None]
  - HYPERHIDROSIS [None]
  - BLOOD GLUCOSE DECREASED [None]
